FAERS Safety Report 16811476 (Version 1)
Quarter: 2019Q3

REPORT INFORMATION
  Report Type: Spontaneous
  Country: US (occurrence: US)
  Receive Date: 20190916
  Receipt Date: 20190916
  Transmission Date: 20191005
  Serious: No
  Sender: FDA-Public Use
  Company Number: US-SA-2019SA252562

PATIENT
  Age: 59 Year
  Sex: Male

DRUGS (7)
  1. HYDROXYZINE HYDROCHLORIDE. [Concomitant]
     Active Substance: HYDROXYZINE HYDROCHLORIDE
  2. DUPIXENT [Suspect]
     Active Substance: DUPILUMAB
     Indication: ASTHMA
     Dosage: 300MG/2ML, QOW
     Route: 058
     Dates: start: 20190328
  3. OMEPRAZOLE. [Concomitant]
     Active Substance: OMEPRAZOLE
  4. BREO ELLIPTA [Concomitant]
     Active Substance: FLUTICASONE FUROATE\VILANTEROL TRIFENATATE
  5. LONHALA MAGNAIR [Concomitant]
     Active Substance: GLYCOPYRROLATE
  6. LEVOCETIRIZINE [Concomitant]
     Active Substance: LEVOCETIRIZINE
  7. ZOLPIDEM [Concomitant]
     Active Substance: ZOLPIDEM TARTRATE

REACTIONS (1)
  - Arthralgia [Unknown]
